FAERS Safety Report 19402759 (Version 3)
Quarter: 2021Q3

REPORT INFORMATION
  Report Type: Spontaneous
  Country: GR (occurrence: GR)
  Receive Date: 20210610
  Receipt Date: 20210720
  Transmission Date: 20211014
  Serious: Yes (Life-Threatening, Hospitalization, Other)
  Sender: FDA-Public Use
  Company Number: GR-PFIZER INC-2021609421

PATIENT
  Age: 38 Year
  Sex: Female

DRUGS (7)
  1. MABTHERA [Suspect]
     Active Substance: RITUXIMAB
     Indication: FOLLICULAR LYMPHOMA
     Dosage: UNK
  2. PREDNISONE. [Suspect]
     Active Substance: PREDNISONE
     Indication: FOLLICULAR LYMPHOMA
     Dosage: UNK
  3. SOLU?MEDROL [Suspect]
     Active Substance: METHYLPREDNISOLONE SODIUM SUCCINATE
     Indication: FOLLICULAR LYMPHOMA
     Dosage: 80 MG
     Dates: start: 20200911, end: 20201204
  4. CYCLOPHOSPHAMIDE. [Suspect]
     Active Substance: CYCLOPHOSPHAMIDE
     Indication: FOLLICULAR LYMPHOMA
     Dosage: 1200 MG
     Dates: start: 20200911, end: 20201204
  5. DOXORUBICIN HCL [Suspect]
     Active Substance: DOXORUBICIN HYDROCHLORIDE
     Indication: FOLLICULAR LYMPHOMA
     Dosage: 80 MG
     Dates: start: 20200911, end: 20201204
  6. VINCRISTINE [Suspect]
     Active Substance: VINCRISTINE
     Indication: FOLLICULAR LYMPHOMA
     Dosage: 2 MG
     Dates: start: 20200911, end: 20201204
  7. GAZYVARO [Suspect]
     Active Substance: OBINUTUZUMAB
     Indication: FOLLICULAR LYMPHOMA
     Dosage: 1 G
     Route: 042
     Dates: start: 20200911, end: 20201204

REACTIONS (4)
  - Neoplasm recurrence [Unknown]
  - Nervous system disorder [Unknown]
  - Herpes virus infection [Unknown]
  - COVID-19 [Unknown]

NARRATIVE: CASE EVENT DATE: 20201208
